FAERS Safety Report 15110168 (Version 1)
Quarter: 2018Q3

REPORT INFORMATION
  Report Type: Spontaneous
  Country: US (occurrence: US)
  Receive Date: 20180705
  Receipt Date: 20180705
  Transmission Date: 20181010
  Serious: No
  Sender: FDA-Public Use
  Company Number: US-VERTEX PHARMACEUTICALS-2018-004565

PATIENT
  Sex: Male

DRUGS (1)
  1. SYMDEKO [Suspect]
     Active Substance: IVACAFTOR\TEZACAFTOR
     Indication: CYSTIC FIBROSIS
     Dosage: UNSPECIFIED DOSE, BID
     Route: 048
     Dates: start: 201806

REACTIONS (1)
  - Pilonidal cyst [Not Recovered/Not Resolved]

NARRATIVE: CASE EVENT DATE: 20180624
